FAERS Safety Report 16257002 (Version 1)
Quarter: 2019Q2

REPORT INFORMATION
  Report Type: Spontaneous
  Country: US (occurrence: US)
  Receive Date: 20190430
  Receipt Date: 20190430
  Transmission Date: 20190711
  Serious: Yes (Hospitalization)
  Sender: FDA-Public Use
  Company Number: US-ROCHE-2309559

PATIENT
  Age: 75 Year
  Sex: Male

DRUGS (15)
  1. ASPIRIN [ACETYLSALICYLIC ACID] [Concomitant]
     Active Substance: ASPIRIN
  2. PHYTONADIONE. [Concomitant]
     Active Substance: PHYTONADIONE
     Route: 048
  3. GABAPENTIN. [Concomitant]
     Active Substance: GABAPENTIN
  4. ACETAMINOPHEN. [Concomitant]
     Active Substance: ACETAMINOPHEN
  5. LORATADINE. [Concomitant]
     Active Substance: LORATADINE
  6. METHYLPREDNISOLONE. [Concomitant]
     Active Substance: METHYLPREDNISOLONE
     Route: 042
  7. GLIPIZIDE. [Concomitant]
     Active Substance: GLIPIZIDE
  8. PIRFENIDONE. [Suspect]
     Active Substance: PIRFENIDONE
     Indication: IDIOPATHIC PULMONARY FIBROSIS
     Route: 048
  9. METOPROLOL TARTRATE. [Concomitant]
     Active Substance: METOPROLOL TARTRATE
  10. OMEPRAZOLE. [Concomitant]
     Active Substance: OMEPRAZOLE
  11. LEVOFLOXACIN. [Concomitant]
     Active Substance: LEVOFLOXACIN
     Indication: PNEUMONIA
     Route: 042
  12. ATORVASTATIN [Concomitant]
     Active Substance: ATORVASTATIN
  13. ESCITALOPRAM [Concomitant]
     Active Substance: ESCITALOPRAM OXALATE
  14. LOSARTAN. [Concomitant]
     Active Substance: LOSARTAN
  15. WARFARIN [Concomitant]
     Active Substance: WARFARIN

REACTIONS (2)
  - Pulmonary alveolar haemorrhage [Not Recovered/Not Resolved]
  - Alveolitis [Not Recovered/Not Resolved]
